FAERS Safety Report 10038334 (Version 1)
Quarter: 2014Q1

REPORT INFORMATION
  Report Type: Spontaneous
  Country: US (occurrence: None)
  Receive Date: 20140306
  Receipt Date: 20140306
  Transmission Date: 20141002
  Serious: Yes (Other)
  Sender: FDA-Public Use
  Company Number: 163-21880-13080394

PATIENT
  Age: 80 Year
  Sex: Female

DRUGS (13)
  1. REVLIMID [Suspect]
     Indication: PLASMA CELL MYELOMA
     Dosage: 5 MG, 6 IN 21 D, PO
     Route: 048
     Dates: start: 20111202
  2. CALCIUM ACETATE(CALCIUM ACETATE) [Concomitant]
  3. MICARDIS(TELMISARTAN) [Concomitant]
  4. FLUTICASONE PROPIONATE (FLUTICASONE PROPIONATE)(SPRAY NOT INHALATION) [Concomitant]
  5. CITALOPRAM HBR(CITALOPRAM HYDROBROMIDE) [Concomitant]
  6. ZYPREXA(OLANZAPINE) [Concomitant]
  7. VITAMIN D (ERGOCALCIFEROL) [Concomitant]
  8. TYLENOL(PARACETAMOL) [Concomitant]
  9. LIPITOR(ATORVASTATIN) [Concomitant]
  10. METOPROLOL SUCCINATE (METOPROLOL SUCCINATE) [Concomitant]
  11. SEROQUEL (QUETIAPINE FUMARATE) [Concomitant]
  12. RENVELA(SEVELAMER CARBONATE) [Concomitant]
  13. CLONIDINE HCL (CLONDINE HYDROCHLORIDE) [Concomitant]

REACTIONS (1)
  - Thrombosis in device [None]
